FAERS Safety Report 4952666-5 (Version None)
Quarter: 2006Q1

REPORT INFORMATION
  Report Type: 
  Country: None (occurrence: None)
  Receive Date: 20060324
  Receipt Date: 20041123
  Transmission Date: 20060701
  Serious: Yes (Death, Hospitalization)
  Sender: FDA-Public Use
  Company Number: FR-ABBOTT-04P-056-0281527-00

PATIENT
  Age: 37 Year
  Sex: Male
  Weight: 60 kg

DRUGS (3)
  1. KALETRA [Suspect]
     Indication: HIV INFECTION
     Route: 048
     Dates: start: 20000621, end: 20020531
  2. LAMIVUDINE [Suspect]
     Indication: HIV INFECTION
     Route: 048
     Dates: start: 20000621, end: 20020531
  3. AMPRENAVIR [Suspect]
     Indication: HIV INFECTION
     Dates: start: 20020311, end: 20020531

REACTIONS (4)
  - CACHEXIA [None]
  - DEATH [None]
  - OSTEONECROSIS [None]
  - RECTAL NEOPLASM [None]
